FAERS Safety Report 17526796 (Version 1)
Quarter: 2020Q1

REPORT INFORMATION
  Report Type: Spontaneous
  Country: ES (occurrence: ES)
  Receive Date: 20200311
  Receipt Date: 20200311
  Transmission Date: 20200409
  Serious: Yes (Life-Threatening)
  Sender: FDA-Public Use
  Company Number: NVSC2020ES067781

PATIENT
  Age: 78 Year
  Sex: Female

DRUGS (3)
  1. MASTICAL D [Concomitant]
     Indication: FRACTURE
     Dosage: 1 DF, QD (D UNIDIA 1000 MG/ 800 UI COMPRIMIDOS MASTICABLES, 30 COMPRIMIDOS)
     Route: 048
     Dates: start: 20130809
  2. LETROZOLE. [Suspect]
     Active Substance: LETROZOLE
     Indication: BREAST MASS
     Dosage: 2.5 MG, Q24H
     Route: 048
     Dates: start: 20160803
  3. PARACETAMOL [Concomitant]
     Active Substance: ACETAMINOPHEN
     Indication: BACK PAIN
     Dosage: 1000 MG, Q8H ( 1.000 MG 40 COMPRIMIDOS)
     Route: 048
     Dates: start: 20191126

REACTIONS (2)
  - Subclavian vein thrombosis [Recovering/Resolving]
  - Axillary vein thrombosis [Recovering/Resolving]

NARRATIVE: CASE EVENT DATE: 20191201
